FAERS Safety Report 8756919 (Version 1)
Quarter: 2012Q4

REPORT INFORMATION
  Report Type: 
  Country: US (occurrence: US)
  Receive Date: 20120828
  Receipt Date: 20120828
  Transmission Date: 20130627
  Serious: Yes (Other)
  Sender: FDA-Public Use
  Company Number: US-PFIZER INC-2012210286

PATIENT
  Age: 55 Year
  Sex: Female
  Weight: 70.3 kg

DRUGS (5)
  1. CELEBREX [Suspect]
     Indication: RHEUMATOID ARTHRITIS
     Dosage: 200 mg, 2x/day
     Route: 048
     Dates: start: 201008
  2. LYRICA [Suspect]
     Indication: FIBROMYALGIA
     Dosage: 100 mg, 2x/day
     Route: 048
     Dates: start: 201008
  3. VYVANSE [Concomitant]
     Dosage: 40 mg, 1x/day
  4. CYMBALTA [Concomitant]
     Dosage: 60 mg, 1x/day
  5. CRESTOR [Concomitant]
     Dosage: 10 mg, 1x/day

REACTIONS (1)
  - Intervertebral disc protrusion [Recovered/Resolved]
